FAERS Safety Report 4430999-9 (Version None)
Quarter: 2004Q3

REPORT INFORMATION
  Report Type: 
  Country: None (occurrence: None)
  Receive Date: 20040824
  Receipt Date: 20040218
  Transmission Date: 20050211
  Serious: Yes (Other)
  Sender: FDA-Public Use
  Company Number: PHNU2004DE00946

PATIENT
  Age: 70 Year
  Sex: Female

DRUGS (3)
  1. BRISERIN-N [Suspect]
     Indication: HYPERTENSION
     Dosage: 1 DF, ONCE/SINGLE
     Route: 048
     Dates: start: 20040217, end: 20040217
  2. WOBENZYM [Concomitant]
  3. ANTIHYPERTENSIVE DRUGS [Concomitant]
     Indication: HYPERTENSION

REACTIONS (2)
  - BLOOD PRESSURE INCREASED [None]
  - PLEURISY [None]
